FAERS Safety Report 7006142-9 (Version None)
Quarter: 2010Q3

REPORT INFORMATION
  Report Type: 
  Country: None (occurrence: None)
  Receive Date: 20100921
  Receipt Date: 20100910
  Transmission Date: 20110219
  Serious: Yes (Hospitalization)
  Sender: FDA-Public Use
  Company Number: US-JNJFOC-20100904510

PATIENT
  Age: 33 Year
  Sex: Male
  Weight: 40.28 kg

DRUGS (3)
  1. EXTRA STRENGTH TYLENOL PM [Suspect]
     Indication: PRODUCT USED FOR UNKNOWN INDICATION
     Route: 048
  2. QUETIAPINE [Suspect]
     Indication: PRODUCT USED FOR UNKNOWN INDICATION
     Dosage: TOOK FIVE OR SIX 300MG TABLETS.
     Route: 048
  3. PRILOSEC [Concomitant]

REACTIONS (7)
  - CONFUSIONAL STATE [None]
  - INTENTIONAL SELF-INJURY [None]
  - LIVER FUNCTION TEST ABNORMAL [None]
  - MULTIPLE DRUG OVERDOSE [None]
  - NAUSEA [None]
  - TACHYCARDIA [None]
  - VOMITING [None]
